FAERS Safety Report 7200591-1 (Version None)
Quarter: 2010Q4

REPORT INFORMATION
  Report Type: 
  Country: None (occurrence: None)
  Receive Date: 20101228
  Receipt Date: 20101220
  Transmission Date: 20110411
  Serious: Yes (Other)
  Sender: FDA-Public Use
  Company Number: CHPA2010US19344

PATIENT
  Age: 51 Year
  Sex: Male
  Weight: 102.4 kg

DRUGS (1)
  1. VOLTAREN [Suspect]
     Indication: PAIN
     Dosage: 2 TO 4 GRAMS, TID
     Route: 061
     Dates: start: 20101125

REACTIONS (4)
  - DRUG ADMINISTERED AT INAPPROPRIATE SITE [None]
  - JOINT SWELLING [None]
  - OEDEMA PERIPHERAL [None]
  - OFF LABEL USE [None]
